FAERS Safety Report 20513294 (Version 1)
Quarter: 2022Q1

REPORT INFORMATION
  Report Type: Spontaneous
  Country: NL (occurrence: NL)
  Receive Date: 20220224
  Receipt Date: 20220224
  Transmission Date: 20220423
  Serious: Yes (Hospitalization, Other)
  Sender: FDA-Public Use
  Company Number: NL-SLATE RUN PHARMACEUTICALS-22NL000912

PATIENT

DRUGS (3)
  1. CINACALCET HYDROCHLORIDE [Suspect]
     Active Substance: CINACALCET HYDROCHLORIDE
     Indication: Hypercalcaemia
     Dosage: UP TO 90 MILLIGRAM, QD
  2. CINACALCET HYDROCHLORIDE [Suspect]
     Active Substance: CINACALCET HYDROCHLORIDE
     Dosage: 60 MILLIGRAM, QD
  3. UNSPECIFIED INGREDIENT [Concomitant]
     Active Substance: UNSPECIFIED INGREDIENT
     Indication: Hypercalcaemia

REACTIONS (11)
  - Hyperemesis gravidarum [Unknown]
  - HELLP syndrome [Unknown]
  - Deep vein thrombosis [Unknown]
  - Hypercalcaemia [Unknown]
  - Hypertension [Unknown]
  - Post-traumatic stress disorder [Recovering/Resolving]
  - Drug dose titration not performed [Unknown]
  - Product use issue [Recovered/Resolved]
  - Treatment failure [Unknown]
  - Maternal exposure during pregnancy [Recovered/Resolved]
  - Depression [Recovering/Resolving]
